FAERS Safety Report 23967979 (Version 1)
Quarter: 2024Q2

REPORT INFORMATION
  Report Type: Report from Study
  Country: US (occurrence: US)
  Receive Date: 20240612
  Receipt Date: 20240612
  Transmission Date: 20240716
  Serious: Yes (Hospitalization, Other)
  Sender: FDA-Public Use
  Company Number: US-UCBSA-2024028820

PATIENT
  Age: 62 Year
  Sex: Male

DRUGS (7)
  1. CERTOLIZUMAB PEGOL [Suspect]
     Active Substance: CERTOLIZUMAB PEGOL
     Indication: Psoriasis
     Dosage: 200 MILLIGRAM, EV 2 WEEKS(QOW)
     Route: 058
     Dates: start: 202212, end: 202305
  2. CERTOLIZUMAB PEGOL [Suspect]
     Active Substance: CERTOLIZUMAB PEGOL
     Dosage: 400 MILLIGRAM, EV 2 WEEKS(QOW)
     Route: 058
     Dates: start: 202310
  3. CERTOLIZUMAB PEGOL [Suspect]
     Active Substance: CERTOLIZUMAB PEGOL
     Dosage: 200 MILLIGRAM, EV 2 WEEKS(QOW)
     Route: 058
  4. AZELASTINE HYDROCHLORIDE\FLUTICASONE PROPIONATE [Concomitant]
     Active Substance: AZELASTINE HYDROCHLORIDE\FLUTICASONE PROPIONATE
     Indication: Product used for unknown indication
     Dosage: 137-50 MCG/ ACT, SUSPENSION 1 SPRAY IN EACH NOSTRIL NASALLY TWICE A DAY
     Route: 045
  5. ALLEGRA HIVES 24HR [Concomitant]
     Active Substance: FEXOFENADINE HYDROCHLORIDE
     Indication: Product used for unknown indication
     Dosage: 180 MILLIGRAM, ONCE DAILY (QD)
     Route: 048
  6. BAYER ASPIRIN [Concomitant]
     Active Substance: ASPIRIN
     Indication: Product used for unknown indication
     Dosage: EC LOW DOSE 81 MILLIGRAM, ONCE DAILY (QD)
     Route: 048
  7. OMEPRAZOLE [Concomitant]
     Active Substance: DONEPEZIL HYDROCHLORIDE\OMEPRAZOLE\OMEPRAZOLE MAGNESIUM
     Indication: Product used for unknown indication
     Dosage: 20 MILLIGRAM CAPSULE DELAYED RELEASE 1 CAPSULE 30 MINUTES BEFORE MORNING MEAL
     Route: 048

REACTIONS (7)
  - Intracranial aneurysm [Unknown]
  - Psoriasis [Unknown]
  - Arthralgia [Unknown]
  - Renal pain [Recovered/Resolved]
  - Therapy interrupted [Unknown]
  - Insurance issue [Unknown]
  - Off label use [Unknown]

NARRATIVE: CASE EVENT DATE: 20221201
